FAERS Safety Report 7531287-4 (Version None)
Quarter: 2011Q2

REPORT INFORMATION
  Report Type: 
  Country: None (occurrence: None)
  Receive Date: 20110531
  Receipt Date: 20110516
  Transmission Date: 20111010
  Serious: Yes (Hospitalization)
  Sender: FDA-Public Use
  Company Number: 2011MA005038

PATIENT
  Age: 52 Year
  Sex: Female

DRUGS (2)
  1. AMLODIPINE [Concomitant]
  2. SPIRONOLACTONE [Suspect]
     Indication: HYPERTENSION

REACTIONS (11)
  - PROTEIN TOTAL DECREASED [None]
  - PARAKERATOSIS [None]
  - PUSTULAR PSORIASIS [None]
  - ACUTE GENERALISED EXANTHEMATOUS PUSTULOSIS [None]
  - THROMBOCYTOPENIA [None]
  - SKIN OEDEMA [None]
  - ASTHENIA [None]
  - ARTHRALGIA [None]
  - BLOOD CREATININE INCREASED [None]
  - BLOOD ALBUMIN DECREASED [None]
  - ERYTHEMA MULTIFORME [None]
